FAERS Safety Report 11315597 (Version 1)
Quarter: 2015Q3

REPORT INFORMATION
  Report Type: Spontaneous
  Country: US (occurrence: US)
  Receive Date: 20150728
  Receipt Date: 20150728
  Transmission Date: 20151125
  Serious: No
  Sender: FDA-Public Use
  Company Number: US-ASTRAZENECA-2015SE70604

PATIENT
  Sex: Female

DRUGS (26)
  1. FLONASE [Concomitant]
     Active Substance: FLUTICASONE PROPIONATE
  2. PROBIOTIC [Concomitant]
     Active Substance: PROBIOTICS NOS
  3. CO Q-1 0 [Concomitant]
  4. FUROSEMIDE. [Concomitant]
     Active Substance: FUROSEMIDE
  5. NORVASC [Concomitant]
     Active Substance: AMLODIPINE BESYLATE
  6. CELECOXIB. [Concomitant]
     Active Substance: CELECOXIB
  7. VENTOLINE [Concomitant]
     Active Substance: ALBUTEROL
  8. SYNTHROID [Concomitant]
     Active Substance: LEVOTHYROXINE SODIUM
  9. MAGNESIUM [Concomitant]
     Active Substance: MAGNESIUM
  10. MICRO?K [Concomitant]
  11. DIOVAN [Concomitant]
     Active Substance: VALSARTAN
  12. CENTRUM SILVER [Concomitant]
     Active Substance: VITAMINS
  13. GLIPIZIDE. [Concomitant]
     Active Substance: GLIPIZIDE
  14. FISH OIL [Concomitant]
     Active Substance: FISH OIL
  15. NITROSTAT [Concomitant]
     Active Substance: NITROGLYCERIN
  16. SINUS RINSE [Concomitant]
  17. GABAPENTIN. [Concomitant]
     Active Substance: GABAPENTIN
  18. ALBUTEROL SULFATE. [Concomitant]
     Active Substance: ALBUTEROL SULFATE
  19. SINGULAIR [Concomitant]
     Active Substance: MONTELUKAST SODIUM
  20. CALCIUM + D [Concomitant]
     Active Substance: CALCIUM\VITAMIN D
  21. ALLOPURINOL. [Concomitant]
     Active Substance: ALLOPURINOL
  22. PULMICORT TURBUHALER [Suspect]
     Active Substance: BUDESONIDE
     Route: 055
     Dates: start: 201412
  23. JANUVIA [Concomitant]
     Active Substance: SITAGLIPTIN PHOSPHATE
  24. PLAVIX [Concomitant]
     Active Substance: CLOPIDOGREL BISULFATE
  25. VITAMIN C [Concomitant]
     Active Substance: ASCORBIC ACID
  26. LIPITOR [Concomitant]
     Active Substance: ATORVASTATIN CALCIUM

REACTIONS (3)
  - Muscular weakness [Not Recovered/Not Resolved]
  - Ulcer [Unknown]
  - Pain [Not Recovered/Not Resolved]
